FAERS Safety Report 7076206-2 (Version None)
Quarter: 2010Q4

REPORT INFORMATION
  Report Type: 
  Country: None (occurrence: None)
  Receive Date: 20101101
  Receipt Date: 20101020
  Transmission Date: 20110411
  Serious: Yes (Other)
  Sender: FDA-Public Use
  Company Number: US-BAYER-201038037NA

PATIENT
  Age: 37 Year
  Sex: Female

DRUGS (2)
  1. MIRENA [Suspect]
     Indication: CONTRACEPTION
     Route: 015
     Dates: start: 20050901
  2. TAN [Concomitant]
     Dosage: I USED SPRAY TAN TWICE RIGHT AROUND THE SAME TIME THE HIVES BROKE OUT

REACTIONS (1)
  - URTICARIA [None]
